FAERS Safety Report 5184836-8 (Version None)
Quarter: 2006Q4

REPORT INFORMATION
  Report Type: 
  Country: None (occurrence: None)
  Receive Date: 20061220
  Receipt Date: 20060501
  Transmission Date: 20070319
  Serious: No
  Sender: FDA-Public Use
  Company Number: US-GLAXOSMITHKLINE-A0603728A

PATIENT
  Sex: Female

DRUGS (2)
  1. NICODERM CQ [Suspect]
     Route: 062
  2. ALBUTEROL [Concomitant]
     Route: 055

REACTIONS (4)
  - ABASIA [None]
  - EMPHYSEMA [None]
  - HYPERSENSITIVITY [None]
  - TREMOR [None]
